FAERS Safety Report 4591636-6 (Version None)
Quarter: 2005Q1

REPORT INFORMATION
  Report Type: 
  Country: None (occurrence: None)
  Receive Date: 20050218
  Receipt Date: 20050208
  Transmission Date: 20050727
  Serious: Yes (Disabling, Other)
  Sender: FDA-Public Use
  Company Number: 2005016824

PATIENT
  Age: 43 Year
  Sex: Female
  Weight: 87.9978 kg

DRUGS (3)
  1. DETROL LA [Suspect]
     Indication: POLLAKIURIA
     Dosage: 4 MG (4 MG, 1 IN 1 D), ORAL
     Route: 048
     Dates: start: 20050112
  2. LIPITOR [Suspect]
     Indication: BLOOD CHOLESTEROL INCREASED
     Dosage: 10 MG (10 MG, 1 IN 1 D), ORAL
     Route: 048
     Dates: start: 20050114, end: 20050118
  3. AMLODIPINE BESYLATE [Concomitant]

REACTIONS (5)
  - ARTHRALGIA [None]
  - DRY MOUTH [None]
  - MYALGIA [None]
  - PAIN IN EXTREMITY [None]
  - PARALYSIS [None]
